FAERS Safety Report 7930098-5 (Version None)
Quarter: 2011Q4

REPORT INFORMATION
  Report Type: 
  Country: None (occurrence: None)
  Receive Date: 20111121
  Receipt Date: 20111110
  Transmission Date: 20120403
  Serious: Yes (Disabling)
  Sender: FDA-Public Use
  Company Number: JP-SANOFI-AVENTIS-2011SA071292

PATIENT
  Age: 58 Year
  Sex: Female
  Weight: 53.4 kg

DRUGS (11)
  1. TAXOTERE [Suspect]
     Route: 042
     Dates: start: 20110307, end: 20110307
  2. TAXOTERE [Suspect]
     Route: 042
     Dates: start: 20110418, end: 20110418
  3. GRANISETRON [Concomitant]
     Route: 042
     Dates: start: 20110328, end: 20110328
  4. TAXOTERE [Suspect]
     Route: 042
  5. GRANISETRON [Concomitant]
     Route: 042
     Dates: start: 20110418, end: 20110418
  6. TAXOTERE [Suspect]
     Route: 042
     Dates: start: 20110328, end: 20110328
  7. GRANISETRON [Concomitant]
     Route: 042
     Dates: start: 20110307, end: 20110307
  8. CARBOPLATIN [Concomitant]
     Dosage: DAILY DOSE: AUC5
  9. DEXAMETHASONE SODIUM PHOSPHATE [Concomitant]
     Indication: ALLERGY PROPHYLAXIS
     Dosage: STRENGTH 6.6 MG
     Route: 042
     Dates: start: 20110307, end: 20110307
  10. DEXAMETHASONE SODIUM PHOSPHATE [Concomitant]
     Dosage: STRENGTH 6.6 MG
     Route: 042
     Dates: start: 20110328, end: 20110328
  11. DEXAMETHASONE SODIUM PHOSPHATE [Concomitant]
     Dosage: STRENGTH 6.6 MG
     Route: 042
     Dates: start: 20110418, end: 20110418

REACTIONS (2)
  - STOMATITIS [None]
  - HYPOPHAGIA [None]
